FAERS Safety Report 6211147-1 (Version None)
Quarter: 2009Q2

REPORT INFORMATION
  Report Type: 
  Country: None (occurrence: None)
  Receive Date: 20090602
  Receipt Date: 20090525
  Transmission Date: 20091009
  Serious: Yes (Hospitalization)
  Sender: FDA-Public Use
  Company Number: RU-ROCHE-635195

PATIENT
  Age: 70 Year
  Sex: Female

DRUGS (6)
  1. BONIVA [Suspect]
     Indication: OSTEOPOROSIS POSTMENOPAUSAL
     Route: 048
     Dates: start: 20090508, end: 20090508
  2. NOLIPREL [Concomitant]
  3. PREDUCTAL [Concomitant]
  4. KETONAL [Concomitant]
  5. ASPIRIN [Concomitant]
  6. NITROMINT [Concomitant]

REACTIONS (4)
  - ABDOMINAL PAIN UPPER [None]
  - GASTRITIS EROSIVE [None]
  - HAEMOGLOBIN DECREASED [None]
  - SYNCOPE [None]
